FAERS Safety Report 7800735-4 (Version None)
Quarter: 2011Q4

REPORT INFORMATION
  Report Type: 
  Country: None (occurrence: None)
  Receive Date: 20111006
  Receipt Date: 20110923
  Transmission Date: 20120403
  Serious: Yes (Other)
  Sender: FDA-Public Use
  Company Number: PHHY2011IT87726

PATIENT
  Sex: Female

DRUGS (7)
  1. EVEROLIMUS [Suspect]
     Dosage: MATERNAL DOSE:0.75 MG, BID
     Route: 064
  2. EVEROLIMUS [Suspect]
     Dosage: MATERNAL DOSE:0.75 MG, BID
     Route: 064
  3. CYCLOSPORINE [Suspect]
     Dosage: MATERNAL DOSE: 100 MG, BID
     Route: 064
  4. STEROIDS NOS [Concomitant]
     Dosage: 5 MG, UNK
  5. STEROIDS NOS [Concomitant]
     Dosage: 5 MG, UNK
  6. EVEROLIMUS [Suspect]
     Route: 064
  7. CYCLOSPORINE [Suspect]
     Dosage: MATERNAL DOSE:125 MG, BID
     Route: 064

REACTIONS (3)
  - PREMATURE BABY [None]
  - MATERNAL EXPOSURE DURING PREGNANCY [None]
  - SMALL FOR DATES BABY [None]
